FAERS Safety Report 8958474 (Version 1)
Quarter: 2012Q4

REPORT INFORMATION
  Report Type: Spontaneous
  Country: US (occurrence: None)
  Receive Date: 20121205
  Receipt Date: 20121205
  Transmission Date: 20130627
  Serious: Yes (Hospitalization)
  Sender: FDA-Public Use
  Company Number: None

PATIENT
  Age: 69 Year
  Sex: Male
  Weight: 69.2 kg

DRUGS (3)
  1. METOPROLOL [Suspect]
     Indication: ATRIAL FIBRILLATION
     Route: 048
     Dates: start: 20091021, end: 20100909
  2. METOPROLOL [Suspect]
     Indication: HYPERTENSION
     Route: 048
     Dates: start: 20091021, end: 20100909
  3. DILTIAZEM [Suspect]
     Route: 048

REACTIONS (3)
  - Sinus bradycardia [None]
  - Drug interaction [None]
  - Therapy cessation [None]
